FAERS Safety Report 5261144-8 (Version None)
Quarter: 2007Q1

REPORT INFORMATION
  Report Type: 
  Country: None (occurrence: None)
  Receive Date: 20070309
  Receipt Date: 20070228
  Transmission Date: 20070707
  Serious: Yes (Other)
  Sender: FDA-Public Use
  Company Number: FR-PFIZER INC-2006150322

PATIENT
  Sex: Female
  Weight: 65 kg

DRUGS (8)
  1. LYRICA [Suspect]
     Indication: PAIN
     Dosage: DAILY DOSE:275MG
  2. TERIPARATIDE [Concomitant]
  3. FENTANYL [Concomitant]
  4. LORAZEPAM [Concomitant]
     Route: 048
  5. OMEPRAZOLE [Concomitant]
     Route: 048
  6. CALCIUM CARBONATE/COLECALCIFEROL [Concomitant]
     Route: 048
  7. MEPROBAMAT [Concomitant]
     Route: 048
  8. MORPHINE SULFATE [Concomitant]
     Route: 048

REACTIONS (2)
  - DRY SKIN [None]
  - SWOLLEN TONGUE [None]
